FAERS Safety Report 7637532-9 (Version None)
Quarter: 2011Q3

REPORT INFORMATION
  Report Type: 
  Country: None (occurrence: None)
  Receive Date: 20110726
  Receipt Date: 20110718
  Transmission Date: 20111222
  Serious: No
  Sender: FDA-Public Use
  Company Number: US-PFIZER INC-2011163529

PATIENT
  Sex: Male

DRUGS (2)
  1. ALPRAZOLAM [Suspect]
     Dosage: 0.5 MG, UNK
     Dates: start: 20060101
  2. ALPRAZOLAM [Suspect]
     Dosage: 0.25 MG, UNK, TOOK 3 TABLETS

REACTIONS (1)
  - SEDATION [None]
